FAERS Safety Report 10477353 (Version 2)
Quarter: 2014Q4

REPORT INFORMATION
  Report Type: Spontaneous
  Country: IT (occurrence: None)
  Receive Date: 20140923
  Receipt Date: 20141017
  Transmission Date: 20150528
  Serious: Yes (Other)
  Sender: FDA-Public Use
  Company Number: 2534629

PATIENT
  Age: 78 Year
  Sex: Female
  Weight: 50 kg

DRUGS (1)
  1. DOCETAXEL. [Suspect]
     Active Substance: DOCETAXEL
     Indication: OESOPHAGEAL CARCINOMA
     Route: 042
     Dates: start: 20140321, end: 20140404

REACTIONS (4)
  - Skin toxicity [None]
  - Skin exfoliation [None]
  - Mucosal inflammation [None]
  - Dysphagia [None]

NARRATIVE: CASE EVENT DATE: 20140403
